FAERS Safety Report 25808016 (Version 1)
Quarter: 2025Q3

REPORT INFORMATION
  Report Type: Spontaneous
  Country: US (occurrence: US)
  Receive Date: 20250916
  Receipt Date: 20250916
  Transmission Date: 20251020
  Serious: No
  Sender: Alora Pharma
  Company Number: US-OSMOTICA PHARMACEUTICALS-2024ALO00511

PATIENT
  Age: 54 Year
  Sex: Female

DRUGS (3)
  1. METHYLPHENIDATE HYDROCHLORIDE [Suspect]
     Active Substance: METHYLPHENIDATE HYDROCHLORIDE
     Indication: Attention deficit hyperactivity disorder
     Dosage: 36 MG, EVERY 12 HOURS
     Dates: start: 20241019
  2. IBUPROFEN [Concomitant]
     Active Substance: IBUPROFEN
  3. LEXAPRO [Concomitant]
     Active Substance: ESCITALOPRAM OXALATE

REACTIONS (9)
  - Gastrointestinal disorder [Unknown]
  - Frequent bowel movements [Unknown]
  - Irritable bowel syndrome [Unknown]
  - Therapeutic response shortened [Not Recovered/Not Resolved]
  - Intentional product use issue [Unknown]
  - Product quality issue [Not Recovered/Not Resolved]
  - Product coating issue [Not Recovered/Not Resolved]
  - Product colour issue [Not Recovered/Not Resolved]
  - Product physical issue [Not Recovered/Not Resolved]

NARRATIVE: CASE EVENT DATE: 20241001
